FAERS Safety Report 8287310-5 (Version None)
Quarter: 2012Q2

REPORT INFORMATION
  Report Type: 
  Country: None (occurrence: None)
  Receive Date: 20120416
  Receipt Date: 20120416
  Transmission Date: 20120825
  Serious: Yes (Other)
  Sender: FDA-Public Use
  Company Number: None

PATIENT
  Age: 44 Year
  Sex: Female
  Weight: 83.914 kg

DRUGS (1)
  1. SPRIX [Suspect]
     Indication: ANALGESIC THERAPY
     Dosage: 1 SPRAY INTO EACH NOSTRIL
     Route: 045
     Dates: start: 20120412, end: 20120412

REACTIONS (6)
  - PAIN [None]
  - FLUSHING [None]
  - LACRIMATION INCREASED [None]
  - CRYING [None]
  - APPLICATION SITE PAIN [None]
  - SINUS HEADACHE [None]
